FAERS Safety Report 17488645 (Version 1)
Quarter: 2020Q1

REPORT INFORMATION
  Report Type: Spontaneous
  Country: US (occurrence: US)
  Receive Date: 20200303
  Receipt Date: 20200303
  Transmission Date: 20200409
  Serious: Yes (Other)
  Sender: FDA-Public Use
  Company Number: None

PATIENT
  Age: 49 Year
  Sex: Female

DRUGS (1)
  1. ORGANIC WEAR CC CREAM SPF 20 [Suspect]
     Active Substance: TITANIUM DIOXIDE\ZINC OXIDE
     Indication: SUNBURN
     Route: 061
     Dates: start: 20100131, end: 20200303

REACTIONS (1)
  - Skin reaction [None]

NARRATIVE: CASE EVENT DATE: 20200218
